FAERS Safety Report 4848285-1 (Version None)
Quarter: 2005Q4

REPORT INFORMATION
  Report Type: 
  Country: None (occurrence: None)
  Receive Date: 20051115
  Receipt Date: 20050726
  Transmission Date: 20060501
  Serious: Yes (Other)
  Sender: FDA-Public Use
  Company Number: S05-USA-03743-01

PATIENT

DRUGS (2)
  1. NAMENDA [Suspect]
  2. REMINYL (GALANTAMINE) [Suspect]

REACTIONS (1)
  - SYNCOPE [None]
